FAERS Safety Report 5387205-0 (Version None)
Quarter: 2007Q3

REPORT INFORMATION
  Report Type: 
  Country: None (occurrence: None)
  Receive Date: 20070711
  Receipt Date: 20070627
  Transmission Date: 20080115
  Serious: Yes (Other)
  Sender: FDA-Public Use
  Company Number: 2007BI014263

PATIENT
  Age: 25 Year
  Sex: Male

DRUGS (2)
  1. AVONEX [Suspect]
     Indication: MULTIPLE SCLEROSIS
     Dosage: 30 UG; QW; IM
     Route: 030
     Dates: start: 20070501
  2. METAMIZOLE [Concomitant]

REACTIONS (4)
  - ARTHROPATHY [None]
  - ILL-DEFINED DISORDER [None]
  - INFLUENZA [None]
  - VISUAL ACUITY REDUCED [None]
